FAERS Safety Report 12779887 (Version 1)
Quarter: 2016Q3

REPORT INFORMATION
  Report Type: Spontaneous
  Country: US (occurrence: US)
  Receive Date: 20160922
  Receipt Date: 20160922
  Transmission Date: 20161109
  Serious: No
  Sender: FDA-Public Use
  Company Number: None

PATIENT
  Age: 69 Year
  Sex: Male

DRUGS (4)
  1. CAPECITABINE 500MG TAB [Suspect]
     Active Substance: CAPECITABINE
     Indication: NEOPLASM MALIGNANT
     Route: 048
     Dates: start: 20160803
  2. AMIODARONE [Concomitant]
     Active Substance: AMIODARONE
  3. CAPECITABINE 150MG TABLET TEVA [Suspect]
     Active Substance: CAPECITABINE
     Indication: NEOPLASM MALIGNANT
     Route: 048
     Dates: start: 20160803
  4. SYNVISC-ONE [Concomitant]
     Active Substance: HYALURONATE SODIUM

REACTIONS (2)
  - Rash [None]
  - Stomatitis [None]

NARRATIVE: CASE EVENT DATE: 201609
